FAERS Safety Report 7934018-9 (Version None)
Quarter: 2011Q4

REPORT INFORMATION
  Report Type: 
  Country: None (occurrence: None)
  Receive Date: 20111122
  Receipt Date: 20111114
  Transmission Date: 20120403
  Serious: Yes (Other)
  Sender: FDA-Public Use
  Company Number: CA-ELI_LILLY_AND_COMPANY-CA201111004218

PATIENT

DRUGS (1)
  1. ZYPREXA [Suspect]
     Dosage: 1 DF, UNK

REACTIONS (9)
  - THIRST [None]
  - RENAL FAILURE [None]
  - HYPERKERATOSIS [None]
  - FOOD CRAVING [None]
  - CONVULSION [None]
  - DIABETES MELLITUS [None]
  - AGGRESSION [None]
  - CHEST PAIN [None]
  - TOOTH LOSS [None]
